FAERS Safety Report 6083104-X (Version None)
Quarter: 2009Q1

REPORT INFORMATION
  Report Type: 
  Country: None (occurrence: None)
  Receive Date: 20090217
  Receipt Date: 20090217
  Transmission Date: 20090719
  Serious: No
  Sender: FDA-Public Use
  Company Number: None

PATIENT
  Age: 44 Year
  Sex: Female
  Weight: 54.4316 kg

DRUGS (5)
  1. MUCINEX D [Suspect]
     Indication: BRONCHITIS
     Dosage: 1 TABLET EVERY 12 HOURS PO
     Route: 048
     Dates: start: 20090214, end: 20090216
  2. MUCINEX D [Suspect]
     Indication: UPPER RESPIRATORY TRACT INFECTION
     Dosage: 1 TABLET EVERY 12 HOURS PO
     Route: 048
     Dates: start: 20090214, end: 20090216
  3. MUCINEX D [Suspect]
     Indication: BRONCHITIS
     Dosage: UP TO 2 TABLETS EVERY 12 HOURS PO
     Route: 048
     Dates: start: 20090206, end: 20090213
  4. MUCINEX D [Suspect]
     Indication: UPPER RESPIRATORY TRACT INFECTION
     Dosage: UP TO 2 TABLETS EVERY 12 HOURS PO
     Route: 048
     Dates: start: 20090206, end: 20090213
  5. CEFDINIR [Concomitant]

REACTIONS (5)
  - ACCIDENTAL EXPOSURE [None]
  - HEART RATE INCREASED [None]
  - INCORRECT DOSE ADMINISTERED [None]
  - INSOMNIA [None]
  - MEDICATION ERROR [None]
